FAERS Safety Report 16837920 (Version 1)
Quarter: 2019Q3

REPORT INFORMATION
  Report Type: Spontaneous
  Country: SE (occurrence: SE)
  Receive Date: 20190923
  Receipt Date: 20190923
  Transmission Date: 20191005
  Serious: Yes (Hospitalization)
  Sender: FDA-Public Use
  Company Number: SE-TEVA-2019-SE-1110367

PATIENT
  Age: 66 Year
  Sex: Female

DRUGS (2)
  1. STESOLID [Suspect]
     Active Substance: DIAZEPAM
     Route: 048
     Dates: start: 20190402, end: 20190402
  2. PROPAVAN [Suspect]
     Active Substance: PROPIOMAZINE
     Dosage: 30 TABLETS
     Route: 048
     Dates: start: 20190402, end: 20190402

REACTIONS (4)
  - Intentional self-injury [Unknown]
  - Psychomotor hyperactivity [Unknown]
  - Dizziness [Recovered/Resolved]
  - Intentional overdose [Unknown]

NARRATIVE: CASE EVENT DATE: 20190402
